FAERS Safety Report 19422007 (Version 4)
Quarter: 2021Q3

REPORT INFORMATION
  Report Type: Report from Study
  Country: US (occurrence: US)
  Receive Date: 20210616
  Receipt Date: 20210818
  Transmission Date: 20211014
  Serious: Yes (Other)
  Sender: FDA-Public Use
  Company Number: NVSC2021US128471

PATIENT
  Age: 66 Year
  Sex: Female

DRUGS (1)
  1. ENTRESTO [Suspect]
     Active Substance: SACUBITRIL\VALSARTAN
     Indication: PRODUCT USED FOR UNKNOWN INDICATION
     Dosage: 100 MG, BID (49/51 MG)
     Route: 048
     Dates: start: 2017

REACTIONS (20)
  - Memory impairment [Unknown]
  - Heart rate decreased [Unknown]
  - Cardiac dysfunction [Recovering/Resolving]
  - Blood sodium decreased [Unknown]
  - Feeling abnormal [Unknown]
  - Fall [Unknown]
  - Gait disturbance [Unknown]
  - Back pain [Not Recovered/Not Resolved]
  - Pain in extremity [Unknown]
  - Parkinson^s disease [Recovering/Resolving]
  - Fatigue [Unknown]
  - Injury [Unknown]
  - Thermal burn [Unknown]
  - Drug ineffective [Recovering/Resolving]
  - Tremor [Unknown]
  - Arthralgia [Unknown]
  - Sluggishness [Recovering/Resolving]
  - Movement disorder [Unknown]
  - Vomiting [Recovering/Resolving]
  - Fear [Recovering/Resolving]

NARRATIVE: CASE EVENT DATE: 202106
